FAERS Safety Report 12336095 (Version 2)
Quarter: 2016Q2

REPORT INFORMATION
  Report Type: Spontaneous
  Country: US (occurrence: US)
  Receive Date: 20160505
  Receipt Date: 20160511
  Transmission Date: 20160815
  Serious: Yes (Other)
  Sender: FDA-Public Use
  Company Number: US-PFIZER INC-2016243755

PATIENT
  Sex: Female

DRUGS (1)
  1. GLYSET [Suspect]
     Active Substance: MIGLITOL
     Dosage: UNK

REACTIONS (4)
  - Renal impairment [Unknown]
  - Drug hypersensitivity [Unknown]
  - Dysuria [Unknown]
  - Renal disorder [Unknown]
